FAERS Safety Report 7624040-4 (Version None)
Quarter: 2011Q3

REPORT INFORMATION
  Report Type: 
  Country: None (occurrence: None)
  Receive Date: 20110720
  Receipt Date: 20110715
  Transmission Date: 20111222
  Serious: Yes (Other)
  Sender: FDA-Public Use
  Company Number: US-MERCK-1105USA03616

PATIENT
  Age: 7 Year
  Sex: Female
  Weight: 23 kg

DRUGS (4)
  1. QVAR 40 [Concomitant]
     Route: 065
  2. PROAIR (ALBUTEROL SULFATE) [Concomitant]
     Indication: ASTHMA
     Route: 055
  3. SINGULAIR [Suspect]
     Indication: ASTHMA
     Route: 048
  4. PRELONE [Concomitant]
     Route: 048

REACTIONS (1)
  - IDIOPATHIC THROMBOCYTOPENIC PURPURA [None]
